FAERS Safety Report 9759673 (Version 2)
Quarter: 2013Q4

REPORT INFORMATION
  Report Type: Spontaneous
  Country: US (occurrence: US)
  Receive Date: 20131216
  Receipt Date: 20131216
  Transmission Date: 20140711
  Serious: No
  Sender: FDA-Public Use
  Company Number: US-GILEAD-2010-0028543

PATIENT
  Sex: Male
  Weight: 65.77 kg

DRUGS (9)
  1. LETAIRIS [Suspect]
     Indication: PULMONARY ARTERIAL HYPERTENSION
     Route: 048
     Dates: start: 20100223
  2. COUMADIN [Suspect]
  3. ISENTRESS [Concomitant]
  4. CHANTIX [Concomitant]
  5. LIPITOR [Concomitant]
  6. NORVIR [Concomitant]
  7. LUNESTA [Concomitant]
  8. VIREAD [Concomitant]
  9. PREZISTA [Concomitant]

REACTIONS (1)
  - Liver function test abnormal [Unknown]
